FAERS Safety Report 8130172-7 (Version None)
Quarter: 2012Q1

REPORT INFORMATION
  Report Type: 
  Country: None (occurrence: None)
  Receive Date: 20120210
  Receipt Date: 20120202
  Transmission Date: 20120608
  Serious: Yes (Hospitalization, Other)
  Sender: FDA-Public Use
  Company Number: US-ELI_LILLY_AND_COMPANY-US201110004531

PATIENT
  Sex: Male
  Weight: 97.506 kg

DRUGS (8)
  1. RANITIDINE [Concomitant]
     Indication: GASTROOESOPHAGEAL REFLUX DISEASE
  2. NOVOLOG [Concomitant]
     Indication: DIABETES MELLITUS
  3. FUROSEMIDE [Concomitant]
  4. WELLBUTRIN [Concomitant]
  5. SIMVASTATIN [Concomitant]
     Indication: HYPERCHOLESTEROLAEMIA
  6. MELOXICAM [Concomitant]
  7. ZEGERID [Concomitant]
     Indication: GASTROOESOPHAGEAL REFLUX DISEASE
  8. BYETTA [Suspect]
     Dosage: UNK
     Dates: start: 20050101, end: 20110101

REACTIONS (2)
  - PANCREATITIS [None]
  - OFF LABEL USE [None]
